FAERS Safety Report 8476928 (Version 3)
Quarter: 2013Q1

REPORT INFORMATION
  Report Type: Spontaneous
  Country: US (occurrence: US)
  Receive Date: 20120326
  Receipt Date: 20130206
  Transmission Date: 20140127
  Serious: Yes (Hospitalization, Other)
  Sender: FDA-Public Use
  Company Number: US-MPIJNJ-2012-01916

PATIENT
  Age: 65 Year
  Sex: Male
  Weight: 74.83 kg

DRUGS (6)
  1. VELCADE [Suspect]
     Indication: PLASMA CELL MYELOMA
     Dosage: 2.5 MG, CYCLIC
     Route: 040
     Dates: start: 20111004, end: 20111118
  2. CYTOXAN [Suspect]
     Indication: PLASMA CELL MYELOMA
     Dosage: 1750 MG, CYCLIC
     Route: 042
     Dates: start: 20111004
  3. DECADRON                           /00016001/ [Suspect]
     Indication: PLASMA CELL MYELOMA
     Dosage: 40 MG, CYCLIC
     Route: 048
     Dates: start: 20111005
  4. DECADRON                           /00016001/ [Suspect]
     Dosage: 40 MG, CYCLIC
     Route: 042
     Dates: start: 20111024
  5. TYLENOL /00020001/ [Concomitant]
     Indication: PRODUCT USED FOR UNKNOWN INDICATION
  6. ZYRTEC [Concomitant]
     Indication: PRODUCT USED FOR UNKNOWN INDICATION

REACTIONS (3)
  - Diverticulitis [Recovered/Resolved]
  - Diverticular perforation [Recovered/Resolved]
  - Abdominal pain [Recovered/Resolved]
